FAERS Safety Report 13532939 (Version 1)
Quarter: 2017Q2

REPORT INFORMATION
  Report Type: Spontaneous
  Country: JP (occurrence: JP)
  Receive Date: 20170510
  Receipt Date: 20170510
  Transmission Date: 20170830
  Serious: Yes (Death, Other)
  Sender: FDA-Public Use
  Company Number: JP-PFIZER INC-2017179879

PATIENT
  Age: 65 Year
  Sex: Male
  Weight: 50.7 kg

DRUGS (2)
  1. FOSMICIN-S [Suspect]
     Active Substance: FOSFOMYCIN SODIUM
     Indication: ENTEROBACTER INFECTION
     Dosage: UNK
     Dates: start: 20170224, end: 20170402
  2. TYGACIL [Suspect]
     Active Substance: TIGECYCLINE
     Indication: ENTEROBACTER INFECTION
     Dosage: UNK
     Route: 041
     Dates: start: 20170216, end: 20170402

REACTIONS (1)
  - Pneumonia aspiration [Fatal]

NARRATIVE: CASE EVENT DATE: 20170402
